FAERS Safety Report 15584166 (Version 1)
Quarter: 2018Q4

REPORT INFORMATION
  Report Type: Spontaneous
  Country: DE (occurrence: DE)
  Receive Date: 20181105
  Receipt Date: 20181105
  Transmission Date: 20190205
  Serious: No
  Sender: FDA-Public Use
  Company Number: DE-HORMOSAN PHARMA GMBH-2018-03601

PATIENT
  Age: 37 Year
  Sex: Female

DRUGS (1)
  1. YIZNELL 0.03 MG/3 MG [Suspect]
     Active Substance: DROSPIRENONE\ETHINYL ESTRADIOL
     Indication: CONTRACEPTION
     Dosage: 1 DOSAGE FORM (0.03 MG/3 MG), DAILY
     Route: 048

REACTIONS (3)
  - Tooth disorder [Not Recovered/Not Resolved]
  - Inappropriate schedule of product administration [Unknown]
  - Pulpitis dental [Not Recovered/Not Resolved]
